FAERS Safety Report 25752485 (Version 2)
Quarter: 2025Q3

REPORT INFORMATION
  Report Type: Spontaneous
  Country: EU (occurrence: EU)
  Receive Date: 20250902
  Receipt Date: 20250911
  Transmission Date: 20251021
  Serious: Yes (Other)
  Sender: BRISTOL-MYERS SQUIBB COMPANY
  Company Number: EU-BRISTOL-MYERS SQUIBB COMPANY-2025-104946

PATIENT
  Age: 76 Year
  Sex: Male
  Weight: 106 kg

DRUGS (8)
  1. ELIQUIS [Suspect]
     Active Substance: APIXABAN
     Indication: Cerebrovascular accident prophylaxis
     Dates: start: 2022
  2. ELIQUIS [Suspect]
     Active Substance: APIXABAN
     Dosage: ONE IN THE MORNING AND ONE IN THE EVENING
  3. ATORVASTATIN [Concomitant]
     Active Substance: ATORVASTATIN
     Indication: Product used for unknown indication
     Dosage: ONE TABLET IN THE MORNING
  4. Dutasteride/tamsulosin beta [Concomitant]
     Indication: Product used for unknown indication
     Dosage: 0.5 MG/0.4 MG ONE HARD CAPSULE IN THE EVENING
  5. METFORMIN [Concomitant]
     Active Substance: METFORMIN HYDROCHLORIDE
     Indication: Product used for unknown indication
     Dosage: 2 X HALF A TABLET DAILY
  6. METOPROLOL SUCCINATE [Concomitant]
     Active Substance: METOPROLOL SUCCINATE
     Indication: Product used for unknown indication
     Dosage: HALF A TABLET IN THE MORNING
  7. RAMIPRIL [Concomitant]
     Active Substance: RAMIPRIL
     Indication: Product used for unknown indication
     Dosage: ACE [ANGIOTENSIN-CONVERTING ENZYME] INHIBITOR HALF TABLET IN THE EVENING
  8. TORSEMIDE [Concomitant]
     Active Substance: TORSEMIDE
     Indication: Product used for unknown indication
     Dosage: HALF A TABLET IN THE MORNING

REACTIONS (2)
  - Tooth disorder [Unknown]
  - Ocular cyst [Unknown]
